FAERS Safety Report 11468296 (Version 4)
Quarter: 2015Q4

REPORT INFORMATION
  Report Type: Spontaneous
  Country: JP (occurrence: JP)
  Receive Date: 20150908
  Receipt Date: 20151030
  Transmission Date: 20160304
  Serious: Yes (Death, Hospitalization)
  Sender: FDA-Public Use
  Company Number: JP-JNJFOC-20150903798

PATIENT
  Age: 79 Year
  Sex: Male
  Weight: 61 kg

DRUGS (14)
  1. LYRICA [Concomitant]
     Active Substance: PREGABALIN
     Indication: PAIN
     Route: 048
     Dates: start: 201404, end: 20150902
  2. CLOSTRIDIUM BUTYRICUM [Concomitant]
     Active Substance: CLOSTRIDIUM BUTYRICUM SPORES STRAIN M-55
     Indication: CONSTIPATION
     Route: 048
     Dates: start: 20150116, end: 20150902
  3. TATHION [Concomitant]
     Indication: ACUTE HEPATIC FAILURE
     Route: 042
     Dates: start: 20150831, end: 20150901
  4. LOXOPROFEN [Concomitant]
     Active Substance: LOXOPROFEN
     Indication: PAIN
     Route: 048
     Dates: start: 20130411, end: 20150902
  5. BUFFERIN [Concomitant]
     Active Substance: ASPIRIN
     Indication: CEREBRAL INFARCTION
     Route: 048
     Dates: start: 2003, end: 20150902
  6. OXYCONTIN [Concomitant]
     Active Substance: OXYCODONE HYDROCHLORIDE
     Indication: PAIN
     Route: 048
     Dates: end: 20150902
  7. NEOPHAGEN C [Concomitant]
     Indication: ACUTE HEPATIC FAILURE
     Route: 042
     Dates: start: 20150831, end: 20150901
  8. ZYTIGA [Suspect]
     Active Substance: ABIRATERONE ACETATE
     Indication: PROSTATE CANCER
     Route: 048
     Dates: start: 20150803, end: 20150831
  9. MIXED AMINO ACID CARBOHYDRATE ELECTROLYTE VITAMIN COMBINED DRUG [Concomitant]
     Indication: PRODUCT USED FOR UNKNOWN INDICATION
     Route: 041
     Dates: start: 20150831, end: 20150902
  10. NEXIUM [Concomitant]
     Active Substance: ESOMEPRAZOLE MAGNESIUM
     Indication: PROPHYLAXIS AGAINST GASTROINTESTINAL ULCER
     Route: 048
     Dates: start: 20131108, end: 20150902
  11. CLOSTRIDIUM BUTYRICUM [Concomitant]
     Active Substance: CLOSTRIDIUM BUTYRICUM SPORES STRAIN M-55
     Indication: DIARRHOEA
     Route: 048
     Dates: start: 20150116, end: 20150902
  12. VIT B1,IN COMBINATION WITH VITAMIN B6 AND B12 [Concomitant]
     Indication: PRODUCT USED FOR UNKNOWN INDICATION
     Route: 042
     Dates: start: 20150831, end: 20150901
  13. ASPARA POTASSIUM [Concomitant]
     Active Substance: POTASSIUM ASPARTATE
     Indication: HYPOKALAEMIA
     Route: 048
     Dates: start: 20140324, end: 20150902
  14. DECADRON [Concomitant]
     Active Substance: DEXAMETHASONE
     Indication: PROSTATE CANCER
     Route: 048
     Dates: start: 20090115, end: 20150902

REACTIONS (3)
  - Prostate cancer [Fatal]
  - Disseminated intravascular coagulation [Fatal]
  - Acute hepatic failure [Fatal]

NARRATIVE: CASE EVENT DATE: 20150831
